FAERS Safety Report 4302245-8 (Version None)
Quarter: 2004Q1

REPORT INFORMATION
  Report Type: 
  Country: None (occurrence: None)
  Receive Date: 20040220
  Receipt Date: 20040209
  Transmission Date: 20041129
  Serious: Yes (Life-Threatening, Hospitalization)
  Sender: FDA-Public Use
  Company Number: 2004006847

PATIENT
  Age: 73 Year
  Sex: Male

DRUGS (17)
  1. SULPERAZON (CEFOPERAZONE, SULBACTAM) [Suspect]
     Indication: PNEUMONIA
     Dosage: 1 GRAM DAILY, INTRAVENOUS
     Route: 042
     Dates: start: 20040117, end: 20040121
  2. UNASYN [Suspect]
     Indication: PNEUMONIA
     Dosage: 3 GRAM DAILY, INTRAVENOUS
     Route: 042
     Dates: start: 20040123, end: 20040123
  3. CLINDAMYCIN (CLINDAMYCIN) [Suspect]
     Indication: PNEUMONIA
     Dosage: 600 MG DAILY, INTRAVENOUS
     Route: 042
     Dates: start: 20040117, end: 20040121
  4. CEFOZOPRAN HYDROCHLORIDE (CEFOZOPRAN HYDROCHLORIDE) [Suspect]
     Indication: PNEUMONIA
     Dosage: 1 GRAM DAILY, INTRAVENOUS
     Route: 042
     Dates: start: 20040121, end: 20040123
  5. CANDESARTAN CILEXETIL (CANDESARTAN CILEXETIL) [Suspect]
     Indication: HYPERTENSION
     Dosage: 8 MG DAILY, ORAL
     Route: 048
     Dates: end: 20040126
  6. ACETYLALICYLIC ACID (ACETYLSALICYLIC ACID) [Suspect]
     Indication: INFARCTION
     Dosage: 100 MG DAILY, ORAL
     Route: 048
     Dates: end: 20040126
  7. KETEK [Concomitant]
  8. LEVOFLOXACIN [Concomitant]
  9. AMBROXOL HYDROCHLORIDE (AMBROXOL HYDROCHLORIDE) [Concomitant]
  10. LANSOPRAZOLE [Concomitant]
  11. NILVADIPINE (NILVADIPINE) [Concomitant]
  12. CARBOCISTEINE (CARBOCISTEINE) [Concomitant]
  13. MAGNESIUM OXIDE (MAGNESIUM OXIDE) [Concomitant]
  14. TAMSULOSIN HYDROCHLORIDE (TAMSULOSIN HYDROCHLORIDE) [Concomitant]
  15. VALISONE-G (GENTAMICIN SULFATE, BETAMETHASONE VALERATE) [Concomitant]
  16. HYDROCORTISONE SODIUM SUCCINATE [Concomitant]
  17. DEXCHLORPHENIRAMINE MALEATE  (DEXCHLORPHENIRAMINE MALEATE) [Concomitant]

REACTIONS (1)
  - TOXIC EPIDERMAL NECROLYSIS [None]
